FAERS Safety Report 8944656 (Version 3)
Quarter: 2013Q1

REPORT INFORMATION
  Report Type: Spontaneous
  Country: US (occurrence: US)
  Receive Date: 20121204
  Receipt Date: 20130314
  Transmission Date: 20140127
  Serious: Yes (Hospitalization)
  Sender: FDA-Public Use
  Company Number: US-GILEAD-2012-0065528

PATIENT
  Age: 32 Year
  Sex: Male

DRUGS (1)
  1. STRIBILD [Suspect]
     Indication: HIV INFECTION
     Dosage: 1 DF, UNK
     Route: 048
     Dates: start: 20121025

REACTIONS (3)
  - Nephrolithiasis [Not Recovered/Not Resolved]
  - Renal failure [Unknown]
  - Blood creatinine increased [Unknown]
